FAERS Safety Report 26209950 (Version 1)
Quarter: 2025Q4

REPORT INFORMATION
  Report Type: Spontaneous
  Country: US (occurrence: US)
  Receive Date: 20251229
  Receipt Date: 20251229
  Transmission Date: 20260118
  Serious: Yes (Hospitalization)
  Sender: MYLAN
  Company Number: US-MYLANLABS-2025M1109168

PATIENT
  Age: 51 Year
  Sex: Male

DRUGS (3)
  1. MELPHALAN [Suspect]
     Active Substance: MELPHALAN
     Indication: Monoclonal gammopathy
     Dosage: UNK
  2. MELPHALAN [Suspect]
     Active Substance: MELPHALAN
     Indication: Renal disorder
  3. FILGRASTIM [Concomitant]
     Active Substance: FILGRASTIM
     Indication: Neutropenia
     Dosage: UNK

REACTIONS (2)
  - Pancytopenia [Unknown]
  - Product prescribing issue [Unknown]
